FAERS Safety Report 5297508-6 (Version None)
Quarter: 2007Q2

REPORT INFORMATION
  Report Type: 
  Country: None (occurrence: None)
  Receive Date: 20070416
  Receipt Date: 20070404
  Transmission Date: 20071010
  Serious: Yes (Other)
  Sender: FDA-Public Use
  Company Number: US-JNJFOC-20070401843

PATIENT
  Sex: Female

DRUGS (2)
  1. DOXIL [Suspect]
     Dosage: 2ND CYCLE
     Route: 042
  2. DOXIL [Suspect]
     Indication: OVARIAN CANCER
     Route: 042

REACTIONS (1)
  - INCORRECT DOSE ADMINISTERED [None]
